FAERS Safety Report 5454807-2 (Version None)
Quarter: 2007Q3

REPORT INFORMATION
  Report Type: 
  Country: None (occurrence: None)
  Receive Date: 20070917
  Receipt Date: 20070906
  Transmission Date: 20080115
  Serious: No
  Sender: FDA-Public Use
  Company Number: US-BOEHRINGER INGELHEIM PHARMACEUTICALS, INC.-2007-BP-20595BP

PATIENT
  Age: 75 Year
  Sex: Female
  Weight: 59 kg

DRUGS (8)
  1. ZANTAC 150 [Suspect]
     Indication: DYSPEPSIA
     Route: 048
     Dates: start: 20070801
  2. TARCEVA [Concomitant]
  3. ZOFRAN [Concomitant]
  4. SENOKOT [Concomitant]
  5. FOSAMAX [Concomitant]
  6. VITAMIN B-12 [Concomitant]
     Route: 030
  7. FOLIC ACID [Concomitant]
  8. CHEMOTHERAPY [Concomitant]

REACTIONS (2)
  - ABDOMINAL DISCOMFORT [None]
  - ERUCTATION [None]
